FAERS Safety Report 15102900 (Version 2)
Quarter: 2018Q4

REPORT INFORMATION
  Report Type: Spontaneous
  Country: US (occurrence: US)
  Receive Date: 20180703
  Receipt Date: 20181213
  Transmission Date: 20190204
  Serious: Yes (Other)
  Sender: FDA-Public Use
  Company Number: US-SA-2018SA171765

PATIENT
  Age: 60 Year
  Sex: Female

DRUGS (13)
  1. COREG [Concomitant]
     Active Substance: CARVEDILOL
  2. AUBAGIO [Suspect]
     Active Substance: TERIFLUNOMIDE
     Dosage: 14 MG, QD
     Route: 048
     Dates: start: 20180622
  3. VITAMIN A + D [ERGOCALCIFEROL;RETINOL] [Concomitant]
  4. IMITREX [SUMATRIPTAN] [Concomitant]
  5. TRINTELLIX [Concomitant]
     Active Substance: VORTIOXETINE HYDROBROMIDE
  6. FOSAMAX [Concomitant]
     Active Substance: ALENDRONATE SODIUM
  7. OXYBUTYNIN CHLORIDE. [Concomitant]
     Active Substance: OXYBUTYNIN CHLORIDE
  8. AUBAGIO [Suspect]
     Active Substance: TERIFLUNOMIDE
     Indication: MULTIPLE SCLEROSIS
     Dosage: 14 MG, QD
     Route: 048
     Dates: start: 2015
  9. ATORVASTATIN CALCIUM. [Concomitant]
     Active Substance: ATORVASTATIN CALCIUM
  10. DEPAKOTE [Concomitant]
     Active Substance: DIVALPROEX SODIUM
  11. ASPIR 81 [Concomitant]
  12. TEGRETOL [Concomitant]
     Active Substance: CARBAMAZEPINE
  13. VIBERZI [Concomitant]
     Active Substance: ELUXADOLINE

REACTIONS (4)
  - Gait disturbance [Unknown]
  - Upper respiratory tract infection [Unknown]
  - Asthenia [Unknown]
  - Spinal operation [Unknown]

NARRATIVE: CASE EVENT DATE: 2018
